FAERS Safety Report 24060248 (Version 1)
Quarter: 2024Q3

REPORT INFORMATION
  Report Type: Report from Study
  Country: US (occurrence: US)
  Receive Date: 20240708
  Receipt Date: 20240708
  Transmission Date: 20241016
  Serious: Yes (Other)
  Sender: RECORDATI
  Company Number: US-RECORDATI-2023003196

PATIENT

DRUGS (1)
  1. SIGNIFOR LAR [Suspect]
     Active Substance: PASIREOTIDE PAMOATE
     Indication: Product used for unknown indication
     Dosage: 40 MILLIGRAM, INJECTION
     Dates: start: 20181120

REACTIONS (3)
  - Nephrolithiasis [Not Recovered/Not Resolved]
  - Kidney infection [Recovering/Resolving]
  - Kidney infection [Recovering/Resolving]

NARRATIVE: CASE EVENT DATE: 20230518
